FAERS Safety Report 8064399-X (Version None)
Quarter: 2011Q4

REPORT INFORMATION
  Report Type: 
  Country: None (occurrence: None)
  Receive Date: 20111221
  Receipt Date: 20110510
  Transmission Date: 20120403
  Serious: Yes (Hospitalization)
  Sender: FDA-Public Use
  Company Number: PHHY2011US31853

PATIENT
  Age: 28 Year
  Sex: Female

DRUGS (6)
  1. PERCOCET [Concomitant]
  2. FOLIC ACID [Concomitant]
  3. EXJADE [Suspect]
     Dosage: 1500 MG DAILY, ORAL
     Route: 048
     Dates: start: 20110307
  4. EXJADE [Suspect]
     Dosage: 1500 MG DAILY, ORAL
     Route: 048
     Dates: start: 20110225
  5. EXJADE [Suspect]
     Dosage: 1500 MG DAILY, ORAL
     Route: 048
     Dates: start: 20110311
  6. GLUTAMINE (LEVOGLUTAMIDE) [Concomitant]

REACTIONS (1)
  - SICKLE CELL ANAEMIA WITH CRISIS [None]
